FAERS Safety Report 4614993-0 (Version None)
Quarter: 2005Q1

REPORT INFORMATION
  Report Type: 
  Country: None (occurrence: None)
  Receive Date: 20050318
  Receipt Date: 20050318
  Transmission Date: 20050727
  Serious: No
  Sender: FDA-Public Use
  Company Number: None

PATIENT
  Age: 35 Year
  Sex: Female

DRUGS (1)
  1. ORTHO-NOVUM 7/7/7-21 [Suspect]

REACTIONS (1)
  - DRUG INTOLERANCE [None]
